FAERS Safety Report 22004719 (Version 1)
Quarter: 2023Q1

REPORT INFORMATION
  Report Type: Spontaneous
  Country: US (occurrence: None)
  Receive Date: 20230216
  Receipt Date: 20230216
  Transmission Date: 20230418
  Serious: Yes (Other)
  Sender: FDA-Public Use
  Company Number: None

PATIENT
  Age: 46 Year
  Sex: Female
  Weight: 101.25 kg

DRUGS (9)
  1. VTAMA [Suspect]
     Active Substance: TAPINAROF
     Indication: Eczema
     Dosage: FREQUENCY : DAILY;?
     Route: 061
     Dates: start: 20221212, end: 20221216
  2. Blisovy [Concomitant]
  3. Metoprolol/Hydrochlorathiazide [Concomitant]
  4. ALLEGRA [Concomitant]
     Active Substance: FEXOFENADINE HYDROCHLORIDE
  5. PROBIOTICS NOS [Concomitant]
     Active Substance: PROBIOTICS NOS
  6. BENADRYL [Concomitant]
     Active Substance: DIPHENHYDRAMINE HYDROCHLORIDE
  7. ADVIL [Concomitant]
     Active Substance: IBUPROFEN
  8. MAGNESIUM [Concomitant]
     Active Substance: MAGNESIUM
  9. UNISOM SLEEPTABS [Concomitant]
     Active Substance: DOXYLAMINE SUCCINATE

REACTIONS (5)
  - Pruritus [None]
  - Rash erythematous [None]
  - Rash [None]
  - Rash [None]
  - Erythema [None]

NARRATIVE: CASE EVENT DATE: 20221216
